FAERS Safety Report 4638508-6 (Version None)
Quarter: 2005Q2

REPORT INFORMATION
  Report Type: 
  Country: None (occurrence: None)
  Receive Date: 20050418
  Receipt Date: 20050329
  Transmission Date: 20051028
  Serious: No
  Sender: FDA-Public Use
  Company Number: EWC050343166

PATIENT
  Age: 5 Year
  Sex: Male
  Weight: 40 kg

DRUGS (1)
  1. STRATTERA [Suspect]
     Indication: ATTENTION DEFICIT/HYPERACTIVITY DISORDER
     Dosage: 20 MG/1 IN THE EVENING
     Dates: start: 20041201

REACTIONS (8)
  - ALANINE AMINOTRANSFERASE INCREASED [None]
  - ANOREXIA [None]
  - ASPARTATE AMINOTRANSFERASE INCREASED [None]
  - BLOOD ALKALINE PHOSPHATASE INCREASED [None]
  - DEPRESSED LEVEL OF CONSCIOUSNESS [None]
  - GAMMA-GLUTAMYLTRANSFERASE INCREASED [None]
  - SOMNOLENCE [None]
  - WEIGHT DECREASED [None]
